FAERS Safety Report 7212407-8 (Version None)
Quarter: 2011Q1

REPORT INFORMATION
  Report Type: 
  Country: None (occurrence: None)
  Receive Date: 20110106
  Receipt Date: 20101231
  Transmission Date: 20110831
  Serious: Yes (Death)
  Sender: FDA-Public Use
  Company Number: US-PFIZER INC-2011001530

PATIENT
  Age: 42 Year
  Sex: Female

DRUGS (4)
  1. DULOXETINE [Suspect]
  2. NIFEDIPINE [Suspect]
  3. QUETIAPINE [Suspect]
  4. MONTELUKAST [Suspect]

REACTIONS (2)
  - COMPLETED SUICIDE [None]
  - INTENTIONAL DRUG MISUSE [None]
